FAERS Safety Report 5488970-4 (Version None)
Quarter: 2007Q4

REPORT INFORMATION
  Report Type: 
  Country: None (occurrence: None)
  Receive Date: 20071016
  Receipt Date: 20071008
  Transmission Date: 20080405
  Serious: Yes (Hospitalization)
  Sender: FDA-Public Use
  Company Number: 2007SP020354

PATIENT
  Age: 47 Year
  Sex: Male
  Weight: 64 kg

DRUGS (2)
  1. TEMODAL [Suspect]
     Indication: GLIOBLASTOMA
     Dosage: 180 MG;QD
     Dates: start: 20070326, end: 20070516
  2. DEXAMETHASONE 0.5MG TAB [Concomitant]

REACTIONS (1)
  - WOUND INFECTION [None]
